FAERS Safety Report 12843235 (Version 1)
Quarter: 2016Q4

REPORT INFORMATION
  Report Type: Spontaneous
  Country: NO (occurrence: NO)
  Receive Date: 20161013
  Receipt Date: 20161013
  Transmission Date: 20170207
  Serious: Yes (Other)
  Sender: FDA-Public Use
  Company Number: NO-GLAXOSMITHKLINE-NO2016GSK147061

PATIENT
  Sex: Female

DRUGS (1)
  1. BENLYSTA [Suspect]
     Active Substance: BELIMUMAB
     Indication: SYSTEMIC LUPUS ERYTHEMATOSUS
     Dosage: UNK
     Dates: start: 201608

REACTIONS (6)
  - Transaminases increased [Unknown]
  - Proteinuria [Unknown]
  - Blood lactate dehydrogenase increased [Unknown]
  - Tubulointerstitial nephritis [Unknown]
  - Nephrotic syndrome [Unknown]
  - Pancytopenia [Unknown]
